FAERS Safety Report 8575611-2 (Version None)
Quarter: 2012Q3

REPORT INFORMATION
  Report Type: 
  Country: None (occurrence: None)
  Receive Date: 20120807
  Receipt Date: 20120731
  Transmission Date: 20120928
  Serious: Yes (Death)
  Sender: FDA-Public Use
  Company Number: US-ASTELLAS-2012US006651

PATIENT
  Sex: Female
  Weight: 64.399 kg

DRUGS (1)
  1. PROGRAF [Suspect]
     Indication: BONE MARROW TRANSPLANT
     Dosage: 1 MG, BID
     Route: 048
     Dates: start: 20110615, end: 20120611

REACTIONS (2)
  - DEATH [None]
  - OFF LABEL USE [None]
